FAERS Safety Report 9701314 (Version 1)
Quarter: 2013Q4

REPORT INFORMATION
  Report Type: Spontaneous
  Country: US (occurrence: US)
  Receive Date: 20131121
  Receipt Date: 20131121
  Transmission Date: 20140711
  Serious: No
  Sender: FDA-Public Use
  Company Number: US-GILEAD-2008-0016490

PATIENT
  Age: 59 Year
  Sex: Female
  Weight: 86.18 kg

DRUGS (9)
  1. LETAIRIS [Suspect]
     Indication: PULMONARY HYPERTENSION
     Route: 048
  2. VITAMIN E D-ALPH [Concomitant]
     Route: 048
  3. SLOW IRON [Concomitant]
     Route: 048
  4. ACYCLOVIR [Concomitant]
     Route: 048
  5. CYPROHEPTAD [Concomitant]
     Route: 048
  6. ISOSORB MONO SR [Concomitant]
     Route: 048
  7. PROZAC [Concomitant]
     Route: 048
  8. OMEPRAZOLE [Concomitant]
     Route: 048
  9. HYDROCHLOROTHIAZIDE [Concomitant]
     Route: 048

REACTIONS (2)
  - Red blood cell count decreased [None]
  - Haematocrit decreased [None]
